FAERS Safety Report 24071461 (Version 1)
Quarter: 2024Q3

REPORT INFORMATION
  Report Type: Report from Study
  Country: DE (occurrence: DE)
  Receive Date: 20240710
  Receipt Date: 20240710
  Transmission Date: 20241017
  Serious: No
  Sender: ROCHE
  Company Number: DE-ROCHE-3428510

PATIENT
  Age: 14 Year
  Sex: Male
  Weight: 67.0 kg

DRUGS (5)
  1. EVRYSDI [Suspect]
     Active Substance: RISDIPLAM
     Indication: Spinal muscular atrophy
     Dosage: LAST DOSE 22/AUG/2023, 14/DEC/2023
     Route: 048
     Dates: start: 20220920
  2. AMOXICILLIN [Suspect]
     Active Substance: AMOXICILLIN
     Indication: Product used for unknown indication
     Route: 065
     Dates: start: 20230815, end: 20230818
  3. CHOLECALCIFEROL [Concomitant]
     Active Substance: CHOLECALCIFEROL
     Dosage: UNKNOWN? FREQUENCY TEXT:UNKNOWN
     Dates: start: 2010
  4. MELATONIN [Concomitant]
     Active Substance: MELATONIN
     Dosage: UNKNOWN? FREQUENCY TEXT:UNKNOWN
     Dates: start: 2022
  5. POLYETHYLENE GLYCOLS [Concomitant]
     Active Substance: POLYETHYLENE GLYCOLS
     Dosage: UNKNOWN? FREQUENCY TEXT:UNKNOWN
     Dates: start: 2012

REACTIONS (3)
  - Upper respiratory tract infection [Recovered/Resolved]
  - Skin reaction [Recovered/Resolved]
  - Nasopharyngitis [Recovered/Resolved]

NARRATIVE: CASE EVENT DATE: 20230801
